FAERS Safety Report 7077793-0 (Version None)
Quarter: 2010Q4

REPORT INFORMATION
  Report Type: 
  Country: None (occurrence: None)
  Receive Date: 20101101
  Receipt Date: 20101019
  Transmission Date: 20110411
  Serious: Yes (Other)
  Sender: FDA-Public Use
  Company Number: PHHY2010US70735

PATIENT
  Age: 73 Year
  Sex: Female

DRUGS (3)
  1. DIOVAN [Suspect]
     Indication: HYPERTENSION
     Dosage: 160 MG TWICE A DAY
  2. ALTACE [Suspect]
  3. CLONIDINE [Concomitant]

REACTIONS (3)
  - BLOOD PRESSURE ABNORMAL [None]
  - CONSTIPATION [None]
  - SWOLLEN TONGUE [None]
